FAERS Safety Report 18990818 (Version 2)
Quarter: 2021Q1

REPORT INFORMATION
  Report Type: Spontaneous
  Country: GB (occurrence: GB)
  Receive Date: 20210310
  Receipt Date: 20210317
  Transmission Date: 20210420
  Serious: Yes (Life-Threatening, Hospitalization, Other)
  Sender: FDA-Public Use
  Company Number: GB-ORGANON-O2103GBR001064

PATIENT
  Age: 64 Year
  Sex: Male
  Weight: 89.81 kg

DRUGS (2)
  1. LOSARTAN POTASSIUM. [Suspect]
     Active Substance: LOSARTAN POTASSIUM
     Indication: HYPERTENSION
     Dosage: 25MG LOSARTAN / 2.5 MG INDAPAMIDE.
     Route: 048
     Dates: start: 201611, end: 20200119
  2. LOSARTAN POTASSIUM. [Suspect]
     Active Substance: LOSARTAN POTASSIUM
     Dosage: 25MG LOSARTAN /  2.5 MG INDAPAMIDE.
     Route: 048
     Dates: start: 201611, end: 20200119

REACTIONS (4)
  - Hypocalcaemia [Unknown]
  - Seizure [Recovered/Resolved with Sequelae]
  - Product monitoring error [Unknown]
  - Hypokalaemia [Unknown]

NARRATIVE: CASE EVENT DATE: 20200119
